FAERS Safety Report 8486653-X (Version None)
Quarter: 2012Q3

REPORT INFORMATION
  Report Type: 
  Country: None (occurrence: None)
  Receive Date: 20120703
  Receipt Date: 20120625
  Transmission Date: 20120928
  Serious: Yes (Disabling, Other)
  Sender: FDA-Public Use
  Company Number: NL-ROCHE-1070176

PATIENT
  Sex: Female
  Weight: 84 kg

DRUGS (2)
  1. XOLAIR [Suspect]
     Indication: ASTHMA
  2. XOLAIR [Suspect]
     Route: 030
     Dates: start: 20110101, end: 20120131

REACTIONS (4)
  - MYALGIA [None]
  - INCORRECT ROUTE OF DRUG ADMINISTRATION [None]
  - SERUM SICKNESS [None]
  - LUNG DISORDER [None]
